FAERS Safety Report 9003203 (Version 1)
Quarter: 2013Q1

REPORT INFORMATION
  Report Type: Spontaneous
  Country: US (occurrence: US)
  Receive Date: 20130108
  Receipt Date: 20130108
  Transmission Date: 20140127
  Serious: Yes (Other)
  Sender: FDA-Public Use
  Company Number: PHEH2013US000675

PATIENT
  Sex: Female

DRUGS (4)
  1. EXFORGE [Suspect]
     Dosage: 1 DF (160/5MG), QD
  2. COREG CR [Suspect]
  3. VYTORIN [Suspect]
  4. ASPIRIN [Suspect]

REACTIONS (2)
  - Macular oedema [Unknown]
  - Nasopharyngitis [Unknown]
